FAERS Safety Report 4286013-1 (Version None)
Quarter: 2004Q1

REPORT INFORMATION
  Report Type: 
  Country: None (occurrence: None)
  Receive Date: 20040203
  Receipt Date: 20321231
  Transmission Date: 20041129
  Serious: Yes (Other)
  Sender: FDA-Public Use
  Company Number: 2004-DE-00519BY (0)

PATIENT
  Age: 76 Year
  Sex: Female

DRUGS (5)
  1. MICARDIS HCT [Suspect]
     Indication: HYPERTENSION
     Dosage: 80 MG PO
     Route: 048
     Dates: start: 20031003, end: 20031229
  2. LIPANTHYL [Concomitant]
  3. HYGROTON [Concomitant]
  4. INHIBACE [Concomitant]
  5. GLUCOPHAGE [Concomitant]

REACTIONS (4)
  - FEELING ABNORMAL [None]
  - GASTROINTESTINAL INFECTION [None]
  - SILENT MYOCARDIAL INFARCTION [None]
  - VOMITING [None]
